FAERS Safety Report 6728285-7 (Version None)
Quarter: 2010Q2

REPORT INFORMATION
  Report Type: 
  Country: None (occurrence: None)
  Receive Date: 20100512
  Receipt Date: 20100429
  Transmission Date: 20101027
  Serious: Yes (Other)
  Sender: FDA-Public Use
  Company Number: 7003290

PATIENT
  Age: 63 Year
  Sex: Female

DRUGS (1)
  1. REBIF [Suspect]
     Indication: MULTIPLE SCLEROSIS
     Dosage: 44 MCG, 3 IN 1 WK, SUBCUTANEOUS
     Route: 058
     Dates: start: 20020705

REACTIONS (6)
  - CARPAL TUNNEL SYNDROME [None]
  - HIATUS HERNIA [None]
  - MUSCLE STRAIN [None]
  - OESOPHAGEAL STENOSIS [None]
  - PEPTIC ULCER [None]
  - VEIN DISORDER [None]
